FAERS Safety Report 9100243 (Version 2)
Quarter: 2013Q1

REPORT INFORMATION
  Report Type: Spontaneous
  Country: US (occurrence: US)
  Receive Date: 20130215
  Receipt Date: 20130327
  Transmission Date: 20140127
  Serious: Yes (Other)
  Sender: FDA-Public Use
  Company Number: US-PFIZER INC-2013059363

PATIENT
  Sex: Female

DRUGS (2)
  1. NEURONTIN [Suspect]
     Dosage: 300 MG, 1X/DAY
     Route: 048
  2. ACCUPRIL [Suspect]
     Dosage: 40 MG, 1X/DAY

REACTIONS (1)
  - Deafness [Unknown]
